FAERS Safety Report 9402398 (Version 4)
Quarter: 2013Q3

REPORT INFORMATION
  Report Type: Spontaneous
  Country: JP (occurrence: JP)
  Receive Date: 20130716
  Receipt Date: 20130923
  Transmission Date: 20140515
  Serious: Yes (Death, Life-Threatening, Other)
  Sender: FDA-Public Use
  Company Number: JP-PFIZER INC-2013203981

PATIENT
  Age: 59 Year
  Sex: Male
  Weight: 71 kg

DRUGS (6)
  1. SUTENT [Suspect]
     Indication: METASTATIC RENAL CELL CARCINOMA
     Dosage: 50 MG DAILY
     Route: 048
     Dates: start: 20130517, end: 20130606
  2. SUTENT [Suspect]
     Dosage: 37.5 MG DAILY
     Dates: start: 20130607, end: 20130613
  3. NAIXAN [Suspect]
     Indication: PYREXIA
     Dosage: 100 MG, 2X/DAY
     Route: 048
     Dates: start: 20130522, end: 20130628
  4. GASTER [Suspect]
     Indication: MONOPLEGIA
     Dosage: 20 MG, 2X/DAY
     Route: 041
     Dates: start: 20130622, end: 20130625
  5. MUCOSTA [Concomitant]
     Dosage: 100 MG, 2X/DAY
     Route: 048
     Dates: start: 20130522, end: 20130628
  6. TRAMAL [Concomitant]
     Dosage: 25 MG, 4X/DAY
     Route: 048
     Dates: start: 20130617, end: 20130624

REACTIONS (7)
  - Interstitial lung disease [Recovering/Resolving]
  - Disease progression [Fatal]
  - Metastatic renal cell carcinoma [Fatal]
  - Monoplegia [Unknown]
  - Pyrexia [Unknown]
  - Hypoalbuminaemia [Unknown]
  - Decreased appetite [Unknown]
